FAERS Safety Report 7604649-4 (Version None)
Quarter: 2011Q3

REPORT INFORMATION
  Report Type: 
  Country: None (occurrence: None)
  Receive Date: 20110712
  Receipt Date: 20110705
  Transmission Date: 20111222
  Serious: Yes (Hospitalization)
  Sender: FDA-Public Use
  Company Number: FR-SANOFI-AVENTIS-2011SA042413

PATIENT
  Age: 74 Year
  Sex: Male

DRUGS (11)
  1. RAMIPRIL [Concomitant]
     Route: 065
  2. IMOVANE [Concomitant]
     Route: 065
  3. INSPRA [Concomitant]
     Route: 065
  4. REPAGLINIDE [Concomitant]
     Route: 065
  5. LANTUS [Suspect]
     Route: 058
     Dates: start: 20100101
  6. PAROXETINE HYDROCHLORIDE [Concomitant]
     Route: 065
  7. LASIX [Concomitant]
     Route: 065
  8. BISOPROLOL FUMARATE [Concomitant]
     Route: 065
  9. PLAVIX [Concomitant]
     Route: 065
  10. COUMADIN [Concomitant]
     Route: 065
  11. ATORVASTATIN [Concomitant]
     Route: 065

REACTIONS (2)
  - FALL [None]
  - CONFUSIONAL STATE [None]
